FAERS Safety Report 6095836-8 (Version None)
Quarter: 2009Q1

REPORT INFORMATION
  Report Type: 
  Country: None (occurrence: None)
  Receive Date: 20090227
  Receipt Date: 20080624
  Transmission Date: 20090719
  Serious: No
  Sender: FDA-Public Use
  Company Number: A0734558A

PATIENT
  Age: 41 Year
  Sex: Male

DRUGS (2)
  1. LAMICTAL [Suspect]
     Indication: HYPOMANIA
     Dosage: 25MG PER DAY
     Route: 048
     Dates: start: 20080616
  2. KLONOPIN [Concomitant]

REACTIONS (1)
  - ILL-DEFINED DISORDER [None]
